FAERS Safety Report 9800993 (Version 2)
Quarter: 2014Q1

REPORT INFORMATION
  Report Type: Report from Study
  Country: FR (occurrence: FR)
  Receive Date: 20140107
  Receipt Date: 20140107
  Transmission Date: 20141002
  Serious: Yes (Hospitalization)
  Sender: FDA-Public Use
  Company Number: FR-BRISTOL-MYERS SQUIBB COMPANY-15750987

PATIENT
  Age: 62 Year
  Sex: Male

DRUGS (6)
  1. IPILIMUMAB [Suspect]
     Indication: MALIGNANT MELANOMA
     Route: 042
     Dates: start: 20090930, end: 20110114
  2. LEVOTHYROX [Concomitant]
     Dates: start: 20100531
  3. HYDROCORTISONE [Concomitant]
     Dates: start: 20100625
  4. SPIRIVA [Concomitant]
     Dates: start: 200906
  5. FORADIL [Concomitant]
     Dates: start: 200906
  6. ANDROTARDYL [Concomitant]
     Dosage: 1 DF=1 INJECTION
     Route: 051

REACTIONS (3)
  - Sepsis [Unknown]
  - Septic encephalopathy [Unknown]
  - Erysipelas [Recovered/Resolved]
